FAERS Safety Report 19469913 (Version 5)
Quarter: 2021Q4

REPORT INFORMATION
  Report Type: Report from Study
  Country: US (occurrence: US)
  Receive Date: 20210628
  Receipt Date: 20211022
  Transmission Date: 20220303
  Serious: Yes (Hospitalization)
  Sender: FDA-Public Use
  Company Number: NVSC2021US137071

PATIENT
  Sex: Female

DRUGS (2)
  1. COSENTYX [Suspect]
     Active Substance: SECUKINUMAB
     Indication: Psoriasis
     Dosage: 300 MG, QW
     Route: 058
  2. COSENTYX [Suspect]
     Active Substance: SECUKINUMAB
     Dosage: 300 MG, QMO
     Route: 058
     Dates: start: 202105

REACTIONS (6)
  - Back pain [Unknown]
  - Large intestine benign neoplasm [Unknown]
  - Musculoskeletal discomfort [Unknown]
  - Incorrect dose administered by device [Unknown]
  - Device leakage [Unknown]
  - Accidental exposure to product [Unknown]
